FAERS Safety Report 9885005 (Version 2)
Quarter: 2014Q1

REPORT INFORMATION
  Report Type: Spontaneous
  Country: US (occurrence: US)
  Receive Date: 20140210
  Receipt Date: 20140219
  Transmission Date: 20141002
  Serious: Yes (Hospitalization)
  Sender: FDA-Public Use
  Company Number: US-JNJFOC-20140202458

PATIENT
  Age: 79 Year
  Sex: Female
  Weight: 68.04 kg

DRUGS (3)
  1. XARELTO [Suspect]
     Indication: CEREBROVASCULAR ACCIDENT PROPHYLAXIS
     Route: 048
     Dates: start: 201304
  2. XARELTO [Suspect]
     Indication: ATRIAL FIBRILLATION
     Route: 048
     Dates: start: 201304
  3. AMIODARONE [Concomitant]
     Route: 048

REACTIONS (3)
  - Gastrointestinal haemorrhage [Unknown]
  - Haemoglobin decreased [Recovering/Resolving]
  - Incorrect dose administered [Unknown]
